FAERS Safety Report 5312601-7 (Version None)
Quarter: 2007Q2

REPORT INFORMATION
  Report Type: 
  Country: None (occurrence: None)
  Receive Date: 20070430
  Receipt Date: 20070131
  Transmission Date: 20071010
  Serious: No
  Sender: FDA-Public Use
  Company Number: 2007UW01978

PATIENT
  Age: 70 Year
  Sex: Male
  Weight: 89.4 kg

DRUGS (5)
  1. NEXIUM [Suspect]
     Indication: GASTROOESOPHAGEAL REFLUX DISEASE
     Route: 048
  2. NEXIUM [Suspect]
     Route: 048
  3. LISINOPRIL [Concomitant]
  4. ATENOLOL [Concomitant]
  5. METROGEL [Concomitant]

REACTIONS (2)
  - GLOSSODYNIA [None]
  - ORAL DISCOMFORT [None]
